FAERS Safety Report 17016125 (Version 3)
Quarter: 2020Q1

REPORT INFORMATION
  Report Type: Spontaneous
  Country: US (occurrence: US)
  Receive Date: 20191111
  Receipt Date: 20200127
  Transmission Date: 20200409
  Serious: Yes (Other)
  Sender: FDA-Public Use
  Company Number: NVSC2019US026915

PATIENT
  Age: 10 Year
  Sex: Male

DRUGS (1)
  1. KYMRIAH [Suspect]
     Active Substance: TISAGENLECLEUCEL
     Indication: ACUTE LYMPHOCYTIC LEUKAEMIA REFRACTORY
     Dosage: UNK
     Route: 065
     Dates: start: 20180403

REACTIONS (1)
  - Acute lymphocytic leukaemia recurrent [Unknown]
